FAERS Safety Report 9763672 (Version 1)
Quarter: 2013Q4

REPORT INFORMATION
  Report Type: Spontaneous
  Country: US (occurrence: US)
  Receive Date: 20131216
  Receipt Date: 20131216
  Transmission Date: 20140711
  Serious: No
  Sender: FDA-Public Use
  Company Number: US-BIOGENIDEC-2013BI110750

PATIENT
  Sex: Female

DRUGS (12)
  1. TECFIDERA [Suspect]
     Indication: PRODUCT USED FOR UNKNOWN INDICATION
     Route: 048
     Dates: start: 20130615, end: 20130622
  2. TECFIDERA [Suspect]
     Indication: PRODUCT USED FOR UNKNOWN INDICATION
     Route: 048
     Dates: start: 20130623
  3. XANAX [Concomitant]
  4. AMBIEN [Concomitant]
  5. NORVASC [Concomitant]
  6. GABAPENTIN [Concomitant]
  7. BUPROPION [Concomitant]
  8. LIDOCAINE [Concomitant]
  9. VITAMIN B-12 [Concomitant]
  10. VITAMIN D3 [Concomitant]
  11. SENSIPAR [Concomitant]
  12. LISINOPRIL [Concomitant]

REACTIONS (1)
  - Dizziness [Unknown]
